FAERS Safety Report 11276330 (Version 1)
Quarter: 2015Q3

REPORT INFORMATION
  Report Type: Spontaneous
  Country: None (occurrence: None)
  Receive Date: 20150715
  Receipt Date: 20150715
  Transmission Date: 20151125
  Serious: No
  Sender: FDA-Public Use
  Company Number: None

PATIENT
  Age: 35 Year
  Sex: Female
  Weight: 61.24 kg

DRUGS (1)
  1. PIN X [Suspect]
     Active Substance: PYRANTEL PAMOATE
     Indication: ENTEROBIASIS
     Dosage: 2 PILLS
     Route: 048
     Dates: start: 20150713

REACTIONS (4)
  - Nausea [None]
  - Asthenia [None]
  - Vomiting [None]
  - Dizziness [None]

NARRATIVE: CASE EVENT DATE: 20150714
